FAERS Safety Report 4760802-9 (Version None)
Quarter: 2005Q3

REPORT INFORMATION
  Report Type: 
  Country: None (occurrence: None)
  Receive Date: 20050901
  Receipt Date: 20050819
  Transmission Date: 20060218
  Serious: Yes (Other)
  Sender: FDA-Public Use
  Company Number: 2005117623

PATIENT
  Age: 18 Year
  Sex: Male
  Weight: 68.0396 kg

DRUGS (2)
  1. BENADRYL [Suspect]
     Dosage: 6 ULTRATABS, ORAL
     Route: 048
     Dates: start: 20050819
  2. METHAMPHETAMINE HCL [Suspect]
     Indication: EUPHORIC MOOD
     Dosage: ONE GRAM, UNKNOWN
     Dates: start: 20050819

REACTIONS (4)
  - DIZZINESS [None]
  - HALLUCINATIONS, MIXED [None]
  - NAUSEA [None]
  - RASH [None]
